FAERS Safety Report 6931410-6 (Version None)
Quarter: 2010Q3

REPORT INFORMATION
  Report Type: 
  Country: None (occurrence: None)
  Receive Date: 20100816
  Receipt Date: 20100806
  Transmission Date: 20110219
  Serious: Yes (Other)
  Sender: FDA-Public Use
  Company Number: 2010SP042914

PATIENT
  Age: 17 Year
  Sex: Female
  Weight: 58.0604 kg

DRUGS (1)
  1. IMPLANON [Suspect]
     Indication: CONTRACEPTION
     Dosage: 68 MG;SBDE
     Route: 059
     Dates: start: 20100501

REACTIONS (8)
  - ABDOMINAL PAIN UPPER [None]
  - ABORTION [None]
  - DRUG EXPOSURE DURING PREGNANCY [None]
  - MOOD SWINGS [None]
  - MUSCLE SPASMS [None]
  - PREGNANCY WITH IMPLANT CONTRACEPTIVE [None]
  - SUICIDAL BEHAVIOUR [None]
  - VAGINAL HAEMORRHAGE [None]
